FAERS Safety Report 6428186-8 (Version None)
Quarter: 2009Q4

REPORT INFORMATION
  Report Type: 
  Country: None (occurrence: None)
  Receive Date: 20091102
  Receipt Date: 20091021
  Transmission Date: 20100525
  Serious: Yes (Death, Hospitalization)
  Sender: FDA-Public Use
  Company Number: 89675

PATIENT
  Age: 49 Year
  Sex: Male

DRUGS (2)
  1. ETOPOSIDE [Suspect]
     Indication: SMALL CELL LUNG CANCER STAGE UNSPECIFIED
     Dosage: 100MG/M2 ON DAYS 1-3
  2. ADRIAMYCIN                (DOXORUBICIN) INJ. USP [Suspect]
     Dosage: 40MG/M2 ON DAY 1

REACTIONS (5)
  - ACUTE HEPATIC FAILURE [None]
  - FEBRILE NEUTROPENIA [None]
  - HEPATITIS CHOLESTATIC [None]
  - NEUTROPENIA [None]
  - THROMBOCYTOPENIA [None]
